FAERS Safety Report 9607884 (Version 1)
Quarter: 2013Q4

REPORT INFORMATION
  Report Type: Spontaneous
  Country: US (occurrence: US)
  Receive Date: 20131009
  Receipt Date: 20131009
  Transmission Date: 20140711
  Serious: Yes (Hospitalization)
  Sender: FDA-Public Use
  Company Number: US-SA-2013SA097853

PATIENT
  Age: 43 Year
  Sex: Female

DRUGS (2)
  1. ZALTRAP [Suspect]
     Indication: COLON CANCER
     Route: 065
     Dates: start: 20130904, end: 20130904
  2. ZALTRAP [Suspect]
     Indication: COLON CANCER
     Route: 065
     Dates: start: 20130918, end: 20130918

REACTIONS (1)
  - Pancreatitis [Not Recovered/Not Resolved]
